FAERS Safety Report 7743007-9 (Version None)
Quarter: 2011Q3

REPORT INFORMATION
  Report Type: 
  Country: None (occurrence: None)
  Receive Date: 20110912
  Receipt Date: 20110902
  Transmission Date: 20111222
  Serious: Yes (Other)
  Sender: FDA-Public Use
  Company Number: BR-ROCHE-785226

PATIENT
  Sex: Female
  Weight: 52 kg

DRUGS (5)
  1. LEXOTAN [Suspect]
     Route: 065
  2. LEXOTAN [Suspect]
     Route: 065
  3. CLONAZEPAM [Suspect]
     Indication: INSOMNIA RELATED TO ANOTHER MENTAL CONDITION
     Route: 048
     Dates: start: 20100101
  4. DIOVAN HCT [Concomitant]
     Indication: HYPERTENSION
     Route: 065
  5. HEMAX [Concomitant]
     Dosage: DRUG NAME REPORTED AS HEMAX ERITRON, DOSE: 4000UI
     Route: 065

REACTIONS (5)
  - SENSATION OF HEAVINESS [None]
  - PAIN IN EXTREMITY [None]
  - GAIT DISTURBANCE [None]
  - RENAL DISORDER [None]
  - PERIPHERAL ISCHAEMIA [None]
